FAERS Safety Report 9158279 (Version 2)
Quarter: 2013Q2

REPORT INFORMATION
  Report Type: Spontaneous
  Country: JP (occurrence: JP)
  Receive Date: 20130312
  Receipt Date: 20130415
  Transmission Date: 20140414
  Serious: Yes (Life-Threatening, Hospitalization)
  Sender: FDA-Public Use
  Company Number: JP-BAYER-2013-030277

PATIENT
  Age: 64 Year
  Sex: Male
  Weight: 78 kg

DRUGS (3)
  1. NEXAVAR [Suspect]
     Indication: HEPATOCELLULAR CARCINOMA
     Dosage: 400 MG, BID
     Route: 048
     Dates: start: 20120308, end: 20130130
  2. ACTOS [Concomitant]
     Indication: DIABETES MELLITUS
     Dosage: DAILY DOSE 7.5 MG
     Route: 048
  3. METFORMIN HYDROCHLORIDE [Concomitant]
     Indication: DIABETES MELLITUS
     Dosage: DAILY DOSE 750 MG
     Route: 048

REACTIONS (2)
  - Liver abscess [Recovering/Resolving]
  - Disseminated intravascular coagulation [Recovering/Resolving]
